FAERS Safety Report 7211658-6 (Version None)
Quarter: 2011Q1

REPORT INFORMATION
  Report Type: 
  Country: None (occurrence: None)
  Receive Date: 20110105
  Receipt Date: 20101229
  Transmission Date: 20110831
  Serious: Yes (Hospitalization, Other)
  Sender: FDA-Public Use
  Company Number: GB-ABBOTT-10P-167-0617986-00

PATIENT
  Sex: Male

DRUGS (4)
  1. HALOPERIDOL [Concomitant]
     Indication: PRODUCT USED FOR UNKNOWN INDICATION
  2. CLOZAPINE [Suspect]
     Indication: SCHIZOPHRENIA
     Dates: start: 19951117, end: 20091019
  3. CLOZAPINE [Suspect]
     Dates: start: 20100304, end: 20101108
  4. VALPROATE SODIUM [Suspect]
     Indication: PRODUCT USED FOR UNKNOWN INDICATION
     Dates: start: 20090720, end: 20091102

REACTIONS (14)
  - LABILE BLOOD PRESSURE [None]
  - MALAISE [None]
  - INFECTION [None]
  - AGRANULOCYTOSIS [None]
  - TREATMENT NONCOMPLIANCE [None]
  - PSYCHOTIC DISORDER [None]
  - OEDEMA PERIPHERAL [None]
  - CATATONIA [None]
  - DISORIENTATION [None]
  - BLOOD CREATINE PHOSPHOKINASE INCREASED [None]
  - FOOD AVERSION [None]
  - WHITE BLOOD CELL COUNT DECREASED [None]
  - SCHIZOPHRENIA [None]
  - NEUTROPENIA [None]
